FAERS Safety Report 17556191 (Version 1)
Quarter: 2020Q1

REPORT INFORMATION
  Report Type: Spontaneous
  Country: US (occurrence: US)
  Receive Date: 20200318
  Receipt Date: 20200318
  Transmission Date: 20200409
  Serious: No
  Sender: FDA-Public Use
  Company Number: US-THERAPEUTICSMD-2020TMD00692

PATIENT
  Sex: Female

DRUGS (3)
  1. UNSPECIFIED MEDICATIONS [Concomitant]
     Active Substance: UNSPECIFIED INGREDIENT
  2. IMVEXXY [Suspect]
     Active Substance: ESTRADIOL
     Indication: ATROPHIC VULVOVAGINITIS
     Dosage: 4 ?G
     Dates: start: 2019, end: 201912
  3. IMVEXXY [Suspect]
     Active Substance: ESTRADIOL
     Indication: MENOPAUSE
     Dosage: 4 ?G, 1X/DAY, BEFORE BED
     Route: 067
     Dates: start: 202002

REACTIONS (3)
  - Product use complaint [Recovering/Resolving]
  - Gastric disorder [Not Recovered/Not Resolved]
  - Vulvovaginal pain [Recovering/Resolving]

NARRATIVE: CASE EVENT DATE: 2019
